FAERS Safety Report 13541156 (Version 6)
Quarter: 2018Q2

REPORT INFORMATION
  Report Type: Spontaneous
  Country: US (occurrence: US)
  Receive Date: 20170512
  Receipt Date: 20180508
  Transmission Date: 20180711
  Serious: Yes (Other)
  Sender: FDA-Public Use
  Company Number: US-TEVA-766273ACC

PATIENT
  Age: 46 Year
  Sex: Female

DRUGS (11)
  1. COPAXONE [Suspect]
     Active Substance: GLATIRAMER ACETATE
     Indication: MULTIPLE SCLEROSIS
     Dosage: PEN
     Route: 058
     Dates: start: 20170308
  2. ASPIRIN. [Concomitant]
     Active Substance: ASPIRIN
     Dates: start: 20170221
  3. BIOTIN [Concomitant]
     Active Substance: BIOTIN
     Dates: start: 20170221
  4. GABAPENTIN. [Concomitant]
     Active Substance: GABAPENTIN
     Dates: start: 20170725
  5. DICLOFENAC [Concomitant]
     Active Substance: DICLOFENAC
     Dates: start: 20170221, end: 20170725
  6. VITAMIN C [Concomitant]
     Active Substance: ASCORBIC ACID
     Dates: start: 20170221
  7. VITAMIN D3 [Concomitant]
     Active Substance: CHOLECALCIFEROL
     Dosage: 2000 UNIT
     Dates: start: 20170221
  8. VITAMIN D3 [Concomitant]
     Active Substance: CHOLECALCIFEROL
     Dosage: 5000 UNIT
     Dates: start: 20170221
  9. VITAMIN B12 [Concomitant]
     Active Substance: CYANOCOBALAMIN
     Dates: start: 20170725
  10. AMITIZA [Concomitant]
     Active Substance: LUBIPROSTONE
     Dates: start: 20170405
  11. ESTROPIPATE. [Concomitant]
     Active Substance: ESTROPIPATE
     Dates: start: 20170221

REACTIONS (5)
  - Pain [Not Recovered/Not Resolved]
  - Multiple sclerosis relapse [Not Recovered/Not Resolved]
  - Depression [Not Recovered/Not Resolved]
  - Fatigue [Not Recovered/Not Resolved]
  - Tremor [Not Recovered/Not Resolved]

NARRATIVE: CASE EVENT DATE: 20170429
